FAERS Safety Report 5598557-0 (Version None)
Quarter: 2008Q1

REPORT INFORMATION
  Report Type: 
  Country: None (occurrence: None)
  Receive Date: 20080122
  Receipt Date: 20080115
  Transmission Date: 20080703
  Serious: Yes (Hospitalization)
  Sender: FDA-Public Use
  Company Number: FR-ELI_LILLY_AND_COMPANY-FR200801003381

PATIENT
  Age: 79 Year
  Sex: Female

DRUGS (6)
  1. FORTEO [Suspect]
     Indication: OSTEOPOROSIS
     Dosage: 20 UG, DAILY (1/D)
     Route: 058
     Dates: start: 20070317, end: 20071229
  2. CLONAZEPAM [Concomitant]
     Dates: start: 20071227, end: 20071229
  3. COZAAR [Concomitant]
  4. VASTAREL [Concomitant]
  5. PLAVIX [Concomitant]
  6. INEXIUM [Concomitant]

REACTIONS (1)
  - COMA [None]
